FAERS Safety Report 7023157-5 (Version None)
Quarter: 2010Q3

REPORT INFORMATION
  Report Type: 
  Country: None (occurrence: None)
  Receive Date: 20100930
  Receipt Date: 20100921
  Transmission Date: 20110219
  Serious: Yes (Other)
  Sender: FDA-Public Use
  Company Number: US-RB-015555-10

PATIENT
  Age: 30 Year
  Sex: Male

DRUGS (2)
  1. SUBOXONE TABLET [Suspect]
     Indication: PRODUCT USED FOR UNKNOWN INDICATION
     Dosage: UNKNOWN DOSING DETAILS
     Route: 065
  2. PAIN KILLER [Concomitant]

REACTIONS (7)
  - ACCIDENT [None]
  - DRUG WITHDRAWAL SYNDROME [None]
  - FOOT FRACTURE [None]
  - HAND FRACTURE [None]
  - INJURY [None]
  - RENAL INJURY [None]
  - VICTIM OF CRIME [None]
